FAERS Safety Report 9171189 (Version 1)
Quarter: 2013Q1

REPORT INFORMATION
  Report Type: Spontaneous
  Country: US (occurrence: None)
  Receive Date: 20130318
  Receipt Date: 20130318
  Transmission Date: 20140127
  Serious: Yes (Hospitalization)
  Sender: FDA-Public Use
  Company Number: None

PATIENT
  Age: 85 Year
  Sex: Female
  Weight: 49.9 kg

DRUGS (1)
  1. BENZONATATE [Suspect]
     Indication: COUGH
     Dosage: AS NEEDED
     Route: 048

REACTIONS (6)
  - Throat tightness [None]
  - Hypoaesthesia oral [None]
  - Dysphagia [None]
  - Speech disorder [None]
  - Dyspnoea [None]
  - Unevaluable event [None]
